FAERS Safety Report 10257209 (Version 3)
Quarter: 2014Q3

REPORT INFORMATION
  Report Type: Spontaneous
  Country: IE (occurrence: IE)
  Receive Date: 20140625
  Receipt Date: 20140707
  Transmission Date: 20150326
  Serious: Yes (Hospitalization, Other)
  Sender: FDA-Public Use
  Company Number: IE-AMGEN-IRLSP2014040143

PATIENT
  Age: 68 Year
  Sex: Female
  Weight: 82.5 kg

DRUGS (15)
  1. ATORVASTATIN [Concomitant]
     Active Substance: ATORVASTATIN
     Dosage: 20 MG, QD
     Route: 048
  2. FUROSEMIDE. [Concomitant]
     Active Substance: FUROSEMIDE
     Dosage: 40 MG, QD
     Route: 048
  3. CARDURA [Concomitant]
     Active Substance: DOXAZOSIN MESYLATE
  4. NITROLINGUAL [Concomitant]
     Active Substance: NITROGLYCERIN
  5. LIPANTIL [Concomitant]
     Active Substance: FENOFIBRATE
  6. LOSEC                              /00661201/ [Concomitant]
  7. METOPROLOL [Concomitant]
     Active Substance: METOPROLOL
     Dosage: 25 MG, QD
     Route: 048
  8. HUMALOG [Concomitant]
     Active Substance: INSULIN LISPRO
  9. LIPITOR [Concomitant]
     Active Substance: ATORVASTATIN CALCIUM
  10. EZETRAL [Concomitant]
     Dosage: 10 MG, QD
     Route: 048
  11. ARANESP [Suspect]
     Active Substance: DARBEPOETIN ALFA
     Indication: RENAL FAILURE CHRONIC
     Dosage: 10 MUG, QMO
     Route: 058
     Dates: start: 20100928
  12. ASPIRIN. [Concomitant]
     Active Substance: ASPIRIN
     Dosage: 75 MG, QD
     Route: 048
  13. IMDUR [Concomitant]
     Active Substance: ISOSORBIDE MONONITRATE
  14. ALLOPURINOL. [Concomitant]
     Active Substance: ALLOPURINOL
     Dosage: 100 MG, QD
     Route: 048
  15. LUTEINE                            /00110701/ [Concomitant]

REACTIONS (8)
  - Fall [Unknown]
  - Cardiac failure [Unknown]
  - Myocardial infarction [Unknown]
  - Angina pectoris [Unknown]
  - Coronary artery occlusion [Unknown]
  - Investigation [Unknown]
  - Hip fracture [Unknown]
  - Chest pain [Unknown]

NARRATIVE: CASE EVENT DATE: 20140402
